FAERS Safety Report 6129494-0 (Version None)
Quarter: 2009Q1

REPORT INFORMATION
  Report Type: 
  Country: None (occurrence: None)
  Receive Date: 20090324
  Receipt Date: 20090309
  Transmission Date: 20090719
  Serious: Yes (Hospitalization)
  Sender: FDA-Public Use
  Company Number: DE-TYCO HEALTHCARE/MALLINCKRODT-T200900648

PATIENT

DRUGS (2)
  1. TRAMADOL HCL [Suspect]
     Indication: PAIN
     Dosage: 50 DROPS (5G) WITHIN 12 H
     Route: 048
     Dates: start: 20080201, end: 20080201
  2. INSULIN [Concomitant]

REACTIONS (8)
  - BRADYCARDIA [None]
  - BRADYPNOEA [None]
  - COLD SWEAT [None]
  - HYPOXIA [None]
  - LOSS OF CONSCIOUSNESS [None]
  - MIOSIS [None]
  - SOMNOLENCE [None]
  - THERAPEUTIC AGENT TOXICITY [None]
